FAERS Safety Report 5649760-2 (Version None)
Quarter: 2008Q1

REPORT INFORMATION
  Report Type: 
  Country: None (occurrence: None)
  Receive Date: 20080304
  Receipt Date: 20080221
  Transmission Date: 20080703
  Serious: Yes (Other)
  Sender: FDA-Public Use
  Company Number: US-PFIZER INC-2008017440

PATIENT
  Age: 43 Year
  Sex: Female

DRUGS (5)
  1. LYRICA [Suspect]
  2. METOPROLOL TARTRATE [Concomitant]
  3. PROCARDIA [Concomitant]
  4. VALTREX [Concomitant]
  5. PROTONIX [Concomitant]

REACTIONS (2)
  - NEOPLASM MALIGNANT [None]
  - SYNCOPE [None]
